FAERS Safety Report 7377335-6 (Version None)
Quarter: 2011Q1

REPORT INFORMATION
  Report Type: 
  Country: None (occurrence: None)
  Receive Date: 20110328
  Receipt Date: 20110317
  Transmission Date: 20110831
  Serious: Yes (Life-Threatening, Hospitalization)
  Sender: FDA-Public Use
  Company Number: US-BAXTER-2011BH004425

PATIENT
  Age: 10 Year
  Sex: Male
  Weight: 36 kg

DRUGS (3)
  1. ADVATE [Suspect]
     Indication: FACTOR VIII DEFICIENCY
     Route: 042
     Dates: start: 20100101, end: 20110224
  2. ADVATE [Suspect]
     Route: 042
     Dates: start: 20110301
  3. ADVATE [Suspect]
     Route: 042
     Dates: start: 20110225, end: 20110228

REACTIONS (5)
  - RHODOCOCCUS INFECTION [None]
  - BACTERAEMIA [None]
  - PYREXIA [None]
  - LUNG ABSCESS [None]
  - DEVICE RELATED INFECTION [None]
